FAERS Safety Report 7486409-0 (Version None)
Quarter: 2011Q2

REPORT INFORMATION
  Report Type: 
  Country: None (occurrence: None)
  Receive Date: 20110513
  Receipt Date: 20110513
  Transmission Date: 20111010
  Serious: Yes (Other)
  Sender: FDA-Public Use
  Company Number: None

PATIENT
  Sex: Female

DRUGS (1)
  1. ENBREL [Suspect]
     Dosage: 50MG QW SQ
     Route: 058
     Dates: start: 20110415, end: 20110513

REACTIONS (3)
  - PHOTOPHOBIA [None]
  - CONDITION AGGRAVATED [None]
  - PARAESTHESIA [None]
